FAERS Safety Report 23309548 (Version 1)
Quarter: 2023Q4

REPORT INFORMATION
  Report Type: Spontaneous
  Country: NL (occurrence: NL)
  Receive Date: 20231218
  Receipt Date: 20231218
  Transmission Date: 20240109
  Serious: Yes (Disabling)
  Sender: FDA-Public Use
  Company Number: None

PATIENT
  Age: 56 Year
  Sex: Female
  Weight: 70 kg

DRUGS (4)
  1. TAMOXIFEN [Suspect]
     Active Substance: TAMOXIFEN
     Indication: Invasive lobular breast carcinoma
     Dosage: 1 DOSAGE FORM, QD
     Route: 065
     Dates: start: 20200701
  2. GILENYA [Suspect]
     Active Substance: FINGOLIMOD HYDROCHLORIDE
     Indication: Multiple sclerosis
     Dosage: 0.25 MILLIGRAM, QD
     Route: 065
     Dates: start: 20210616
  3. LEUPROLIDE ACETATE [Suspect]
     Active Substance: LEUPROLIDE ACETATE
     Indication: Prophylaxis
     Dosage: ONCE EVERY 3 MONTHS
     Route: 065
     Dates: start: 20210116
  4. POLYETHYLENE GLYCOLS [Concomitant]
     Active Substance: POLYETHYLENE GLYCOLS
     Dosage: MACROGOL/ SALTS DRINK
     Route: 065

REACTIONS (4)
  - Small fibre neuropathy [Recovering/Resolving]
  - Rash erythematous [Recovering/Resolving]
  - Hair disorder [Recovering/Resolving]
  - Paraesthesia [Recovering/Resolving]
